FAERS Safety Report 7548744-7 (Version None)
Quarter: 2011Q2

REPORT INFORMATION
  Report Type: 
  Country: None (occurrence: None)
  Receive Date: 20110615
  Receipt Date: 20110610
  Transmission Date: 20111010
  Serious: Yes (Hospitalization)
  Sender: FDA-Public Use
  Company Number: CO-MEDIMMUNE-MEDI-0013147

PATIENT
  Sex: Male

DRUGS (1)
  1. SYNAGIS [Suspect]
     Route: 058
     Dates: start: 20110416, end: 20110416

REACTIONS (2)
  - HYPOTONIA NEONATAL [None]
  - GASTROOESOPHAGEAL REFLUX DISEASE [None]
